FAERS Safety Report 5056295-7 (Version None)
Quarter: 2006Q3

REPORT INFORMATION
  Report Type: 
  Country: None (occurrence: None)
  Receive Date: 20060720
  Receipt Date: 20060308
  Transmission Date: 20061208
  Serious: Yes (Disabling, Other)
  Sender: FDA-Public Use
  Company Number: PHBS2006PE03761

PATIENT
  Age: 70 Year
  Sex: Male

DRUGS (3)
  1. EXELON [Suspect]
     Indication: DEMENTIA ALZHEIMER'S TYPE
     Dosage: 1.5 MG, BID
     Route: 048
     Dates: start: 20060126
  2. EXELON [Suspect]
     Dosage: 3 MG, BID
     Route: 048
     Dates: end: 20060210
  3. CAPTOPRIL [Concomitant]

REACTIONS (7)
  - ABASIA [None]
  - ANAL SPHINCTER ATONY [None]
  - APHASIA [None]
  - BLADDER SPHINCTER ATONY [None]
  - BLOOD PRESSURE DECREASED [None]
  - FLUSHING [None]
  - HYPERHIDROSIS [None]
